FAERS Safety Report 4311168-X (Version None)
Quarter: 2004Q1

REPORT INFORMATION
  Report Type: 
  Country: None (occurrence: None)
  Receive Date: 20040302
  Receipt Date: 20040218
  Transmission Date: 20041129
  Serious: Yes (Life-Threatening, Hospitalization)
  Sender: FDA-Public Use
  Company Number: 03P-056-0244065-00

PATIENT
  Age: 44 Year
  Sex: Male

DRUGS (5)
  1. DEPAKOTE [Suspect]
     Indication: MANIA
     Dosage: 2500 MG, 1 IN 1 D, PER ORAL
     Route: 048
     Dates: start: 20030901, end: 20031202
  2. LEPONEX [Concomitant]
  3. ALIMEMAZINE TARTRATE [Concomitant]
  4. CLOZAPINE [Concomitant]
  5. HYDROXYZINE HYDROCHLORIDE [Concomitant]

REACTIONS (9)
  - ANOREXIA [None]
  - DRUG LEVEL INCREASED [None]
  - GENERAL PHYSICAL HEALTH DETERIORATION [None]
  - HYPERAMMONAEMIA [None]
  - HYPONATRAEMIA [None]
  - PLATELET COUNT DECREASED [None]
  - SOMNOLENCE [None]
  - STUPOR [None]
  - WEIGHT DECREASED [None]
